FAERS Safety Report 5984311-4 (Version None)
Quarter: 2008Q4

REPORT INFORMATION
  Report Type: 
  Country: None (occurrence: None)
  Receive Date: 20081208
  Receipt Date: 20080312
  Transmission Date: 20090506
  Serious: No
  Sender: FDA-Public Use
  Company Number: US-AMGEN-KDL265322

PATIENT
  Sex: Male

DRUGS (6)
  1. ENBREL [Suspect]
     Indication: PSORIASIS
     Route: 058
     Dates: start: 20060201, end: 20080201
  2. PROTONIX [Concomitant]
  3. FLAX SEED OIL [Concomitant]
  4. CITRACAL [Concomitant]
  5. ALBUTEROL [Concomitant]
  6. CORTICOSTEROIDS [Concomitant]

REACTIONS (5)
  - DERMATITIS [None]
  - HYPERSENSITIVITY [None]
  - LOWER RESPIRATORY TRACT INFECTION [None]
  - PSORIASIS [None]
  - RASH GENERALISED [None]
